FAERS Safety Report 6324007-2 (Version None)
Quarter: 2009Q3

REPORT INFORMATION
  Report Type: 
  Country: None (occurrence: None)
  Receive Date: 20090824
  Receipt Date: 20090814
  Transmission Date: 20100115
  Serious: Yes (Death)
  Sender: FDA-Public Use
  Company Number: B0589823A

PATIENT

DRUGS (2)
  1. LANOXIN [Suspect]
     Dosage: 1AMP TWICE PER DAY
     Route: 065
  2. NALOXONE [Suspect]
     Indication: RESPIRATORY DEPRESSION
     Route: 065

REACTIONS (2)
  - DRUG ADMINISTRATION ERROR [None]
  - DRUG NAME CONFUSION [None]
